FAERS Safety Report 19874184 (Version 1)
Quarter: 2021Q3

REPORT INFORMATION
  Report Type: Spontaneous
  Country: US (occurrence: US)
  Receive Date: 20210922
  Receipt Date: 20210922
  Transmission Date: 20211014
  Serious: No
  Sender: FDA-Public Use
  Company Number: US-SA-2021SA308924

PATIENT
  Sex: Female

DRUGS (6)
  1. NORGESTIMATE + ETHINYL ESTRADIOL [Concomitant]
  2. PROGESTERONE. [Concomitant]
     Active Substance: PROGESTERONE
  3. VITAMIN B NOS [Concomitant]
     Active Substance: VITAMIN B
  4. LYSINE [Concomitant]
     Active Substance: LYSINE
  5. AUBAGIO [Suspect]
     Active Substance: TERIFLUNOMIDE
     Indication: MULTIPLE SCLEROSIS
     Dosage: 14 MG, QD
     Route: 048
  6. MAGNESIUM [Concomitant]
     Active Substance: MAGNESIUM

REACTIONS (1)
  - Rash erythematous [Unknown]
